FAERS Safety Report 9155722 (Version 1)
Quarter: 2013Q1

REPORT INFORMATION
  Report Type: Spontaneous
  Country: US (occurrence: US)
  Receive Date: 20130311
  Receipt Date: 20130311
  Transmission Date: 20140127
  Serious: Yes (Hospitalization, Other)
  Sender: FDA-Public Use
  Company Number: US-JNJFOC-20130303526

PATIENT
  Age: 61 Year
  Sex: Female
  Weight: 104.33 kg

DRUGS (5)
  1. XARELTO [Suspect]
     Indication: CEREBROVASCULAR ACCIDENT
     Route: 048
     Dates: start: 20120720, end: 20120727
  2. XARELTO [Suspect]
     Indication: ATRIAL FIBRILLATION
     Route: 048
     Dates: start: 20120720, end: 20120727
  3. COREG [Concomitant]
  4. HYZAAR [Concomitant]
     Indication: BLOOD PRESSURE
  5. NORVASC [Concomitant]
     Indication: BLOOD PRESSURE

REACTIONS (3)
  - Cerebrovascular accident [Not Recovered/Not Resolved]
  - Heart rate increased [Unknown]
  - Cerebral thrombosis [Unknown]
